FAERS Safety Report 21297080 (Version 1)
Quarter: 2022Q3

REPORT INFORMATION
  Report Type: Spontaneous
  Country: US (occurrence: US)
  Receive Date: 20220906
  Receipt Date: 20220906
  Transmission Date: 20221027
  Serious: No
  Sender: FDA-Public Use
  Company Number: US-NOVARTISTESTPH-NVSC2022US200116

PATIENT
  Sex: Female

DRUGS (3)
  1. ZOMETA [Suspect]
     Active Substance: ZOLEDRONIC ACID
     Indication: Product used for unknown indication
     Dosage: UNK, QMO
     Route: 065
  2. IBRANCE [Suspect]
     Active Substance: PALBOCICLIB
     Indication: Product used for unknown indication
     Dosage: 1 DOSAGE FORM (DAILY FOR 21 DAYS ON, THEY 7 DAYS OFF)
     Route: 065
     Dates: start: 20220308
  3. IBRANCE [Suspect]
     Active Substance: PALBOCICLIB
     Dosage: 100 MG
     Route: 065
     Dates: start: 20220824

REACTIONS (12)
  - Depression [Unknown]
  - Ill-defined disorder [Unknown]
  - Sleep disorder [Unknown]
  - Memory impairment [Unknown]
  - Glossodynia [Unknown]
  - Scalloped tongue [Unknown]
  - Taste disorder [Unknown]
  - Vitamin B12 decreased [Unknown]
  - Constipation [Unknown]
  - Stomatitis [Unknown]
  - Rash [Recovered/Resolved]
  - Fatigue [Unknown]
